FAERS Safety Report 18023553 (Version 2)
Quarter: 2020Q3

REPORT INFORMATION
  Report Type: Spontaneous
  Country: JP (occurrence: JP)
  Receive Date: 20200715
  Receipt Date: 20200727
  Transmission Date: 20201103
  Serious: Yes (Hospitalization, Other)
  Sender: FDA-Public Use
  Company Number: JP-TEVA-2020-JP-1801915

PATIENT
  Age: 85 Year
  Sex: Male

DRUGS (9)
  1. NEODOPASTON [Concomitant]
     Active Substance: CARBIDOPA\LEVODOPA
  2. CRESTOR [Concomitant]
     Active Substance: ROSUVASTATIN CALCIUM
  3. NEXIUM [Concomitant]
     Active Substance: ESOMEPRAZOLE MAGNESIUM
  4. ARICEPT [Concomitant]
     Active Substance: DONEPEZIL HYDROCHLORIDE
  5. MICARDIS [Concomitant]
     Active Substance: TELMISARTAN
  6. AZILECT [Suspect]
     Active Substance: RASAGILINE MESYLATE
     Indication: PRODUCT USED FOR UNKNOWN INDICATION
     Dosage: .5 MILLIGRAM DAILY;
     Route: 048
     Dates: start: 201908, end: 202005
  7. PLAVIX [Concomitant]
     Active Substance: CLOPIDOGREL BISULFATE
  8. EXCEGRAN [Concomitant]
     Active Substance: ZONISAMIDE
  9. NOURIAST [Concomitant]
     Active Substance: ISTRADEFYLLINE

REACTIONS (1)
  - Decreased activity [Recovered/Resolved]

NARRATIVE: CASE EVENT DATE: 202005
